FAERS Safety Report 5694062-1 (Version None)
Quarter: 2008Q2

REPORT INFORMATION
  Report Type: 
  Country: None (occurrence: None)
  Receive Date: 20080403
  Receipt Date: 20080331
  Transmission Date: 20081010
  Serious: Yes (Other)
  Sender: FDA-Public Use
  Company Number: US-MERCK-0802USA03436

PATIENT
  Age: 50 Year
  Sex: Female

DRUGS (7)
  1. ZOCOR [Suspect]
     Indication: CORONARY ARTERY DISEASE
     Route: 048
     Dates: start: 20080104, end: 20080208
  2. ZOCOR [Suspect]
     Indication: DYSLIPIDAEMIA
     Route: 048
     Dates: start: 20080104, end: 20080208
  3. [THERAPY UNSPECIFIED] [Concomitant]
     Route: 065
  4. ZETIA [Suspect]
     Indication: DYSLIPIDAEMIA
     Route: 048
  5. ZETIA [Suspect]
     Indication: CORONARY ARTERY DISEASE
     Route: 048
  6. VYTORIN [Suspect]
     Indication: CORONARY ARTERY DISEASE
     Route: 048
  7. VYTORIN [Suspect]
     Indication: DYSLIPIDAEMIA
     Route: 048

REACTIONS (4)
  - ACUTE MYOCARDIAL INFARCTION [None]
  - FIBROMYALGIA [None]
  - MYALGIA [None]
  - PAIN IN EXTREMITY [None]
